FAERS Safety Report 4526217-3 (Version None)
Quarter: 2004Q4

REPORT INFORMATION
  Report Type: 
  Country: None (occurrence: None)
  Receive Date: 20041210
  Receipt Date: 20041206
  Transmission Date: 20050328
  Serious: Yes (Death)
  Sender: FDA-Public Use
  Company Number: 004-041206

PATIENT
  Sex: Female
  Weight: 113.3993 kg

DRUGS (1)
  1. BETASEPT 4% CHLORHEXIDINE GLUCONATE [Suspect]
     Indication: PREOPERATIVE CARE
     Dosage: TOPICAL
     Route: 061
     Dates: start: 20041104

REACTIONS (5)
  - EXTREMITY NECROSIS [None]
  - IATROGENIC INJURY [None]
  - MEDICATION ERROR [None]
  - RENAL FAILURE [None]
  - RESPIRATORY FAILURE [None]
